FAERS Safety Report 11752128 (Version 3)
Quarter: 2016Q1

REPORT INFORMATION
  Report Type: Spontaneous
  Country: ES (occurrence: ES)
  Receive Date: 20151118
  Receipt Date: 20160308
  Transmission Date: 20160525
  Serious: Yes (Other)
  Sender: FDA-Public Use
  Company Number: ES-PFIZER INC-2015388689

PATIENT
  Age: 70 Year
  Sex: Male

DRUGS (8)
  1. CEFTRIAXONE. [Suspect]
     Active Substance: CEFTRIAXONE
     Dosage: UNK
  2. CLINDAMYCIN HCL [Suspect]
     Active Substance: CLINDAMYCIN HYDROCHLORIDE
     Dosage: UNK
  3. CLOXACILLIN [Suspect]
     Active Substance: CLOXACILLIN
     Dosage: UNK
  4. DORIPENEM [Suspect]
     Active Substance: DORIPENEM
     Dosage: UNK
  5. PENICILLIN G [Suspect]
     Active Substance: PENICILLIN G
     Dosage: UNK
  6. MEROPENEM. [Suspect]
     Active Substance: MEROPENEM
     Dosage: UNK
  7. AMPICILLIN [Suspect]
     Active Substance: AMPICILLIN
     Dosage: UNK
  8. AZTREONAM. [Suspect]
     Active Substance: AZTREONAM
     Dosage: UNK

REACTIONS (1)
  - Toxic skin eruption [Unknown]
